FAERS Safety Report 9508796 (Version 1)
Quarter: 2013Q3

REPORT INFORMATION
  Report Type: Spontaneous
  Country: US (occurrence: US)
  Receive Date: 20130909
  Receipt Date: 20130909
  Transmission Date: 20140515
  Serious: No
  Sender: FDA-Public Use
  Company Number: US-BRISTOL-MYERS SQUIBB COMPANY-19095579

PATIENT
  Age: 55 Year
  Sex: Female
  Weight: 73.47 kg

DRUGS (3)
  1. ABILIFY [Suspect]
     Indication: DEPRESSION
     Dates: start: 2013
  2. SERTRALINE [Concomitant]
     Indication: DEPRESSION
  3. ALPRAZOLAM [Concomitant]

REACTIONS (3)
  - Influenza like illness [Recovered/Resolved]
  - Irritability [Recovered/Resolved]
  - Abdominal pain upper [Recovered/Resolved]
